FAERS Safety Report 9481760 (Version 2)
Quarter: 2013Q3

REPORT INFORMATION
  Report Type: Spontaneous
  Country: US (occurrence: US)
  Receive Date: 20130828
  Receipt Date: 20130828
  Transmission Date: 20140515
  Serious: Yes (Other)
  Sender: FDA-Public Use
  Company Number: US-AMGEN-KDL221544

PATIENT
  Age: 56 Year
  Sex: Female

DRUGS (12)
  1. ENBREL [Suspect]
     Indication: PSORIATIC ARTHROPATHY
     Dosage: 50 MG, QWK
     Route: 058
     Dates: start: 20070216
  2. METHOTREXATE [Suspect]
     Dosage: UNK UNK, UNK
     Dates: start: 20060921, end: 20070424
  3. LEVOTHYROXINE SODIUM [Concomitant]
     Dosage: UNK UNK, UNK
     Dates: start: 20060902
  4. ALENDRONATE SODIUM [Concomitant]
     Dosage: UNK UNK, UNK
     Dates: start: 20060921
  5. OMEPRAZOLE [Concomitant]
     Dosage: UNK UNK, UNK
     Dates: start: 20060921
  6. ASPIRIN [Concomitant]
     Dosage: UNK UNK, UNK
     Dates: start: 20060921
  7. ATORVASTATIN CALCIUM [Concomitant]
  8. MELOXICAM [Concomitant]
     Dosage: UNK UNK, UNK
     Dates: start: 20060921
  9. CYCLOBENZAPRINE HYDROCHLORIDE [Concomitant]
     Dosage: UNK UNK, UNK
     Dates: start: 20060921
  10. MEDROXYPROGESTERONE ACETATE [Concomitant]
     Dosage: UNK UNK, UNK
     Dates: start: 20060921
  11. ESTRADIOL [Concomitant]
     Dosage: UNK UNK, UNK
     Route: 062
     Dates: start: 20061204
  12. ESTRADIOL [Concomitant]
     Dosage: UNK UNK, UNK
     Route: 067
     Dates: start: 20060921

REACTIONS (2)
  - Staphylococcal infection [Recovered/Resolved]
  - Sinusitis [Recovered/Resolved]
